FAERS Safety Report 10388251 (Version 1)
Quarter: 2014Q3

REPORT INFORMATION
  Report Type: Spontaneous
  Country: US (occurrence: US)
  Receive Date: 20140815
  Receipt Date: 20140815
  Transmission Date: 20150326
  Serious: Yes (Other)
  Sender: FDA-Public Use
  Company Number: US-BAYER-2014-117036

PATIENT
  Age: 80 Year
  Sex: Male
  Weight: 109 kg

DRUGS (3)
  1. VITAMIN C [Concomitant]
     Active Substance: ASCORBIC ACID
  2. SAW PALMETTO [Concomitant]
     Active Substance: SAW PALMETTO
  3. PHILLIPS^ LIQUID GELS STOOL SOFTENER [Suspect]
     Active Substance: DOCUSATE SODIUM
     Indication: CONSTIPATION
     Dosage: 2 DF, PRN
     Route: 048
     Dates: start: 2013

REACTIONS (2)
  - Drug ineffective [None]
  - Faecaloma [Recovered/Resolved]

NARRATIVE: CASE EVENT DATE: 2013
